FAERS Safety Report 25520712 (Version 2)
Quarter: 2025Q3

REPORT INFORMATION
  Report Type: Report from Study
  Country: US (occurrence: US)
  Receive Date: 20250705
  Receipt Date: 20250710
  Transmission Date: 20251021
  Serious: Yes (Death, Hospitalization, Other)
  Sender: NOVARTIS
  Company Number: US-002147023-NVSC2025US106239

PATIENT
  Sex: Male

DRUGS (15)
  1. ENTRESTO [Suspect]
     Active Substance: SACUBITRIL\VALSARTAN
     Indication: Product used for unknown indication
     Dosage: 24 MG (24/26 MG), BID (TAKE 1 TABLET BY MOUTH 2 (TWO) TIMES DAILY)
     Route: 048
     Dates: start: 20240716
  2. ENTRESTO [Suspect]
     Active Substance: SACUBITRIL\VALSARTAN
     Dosage: 24 MG, BID (24-26) TAKE 1 TABLET BY MOUTH 2 (TWO) TIMES DAILY. - ORAL
     Route: 048
     Dates: start: 20250522
  3. BUSPIRONE [Concomitant]
     Active Substance: BUSPIRONE HYDROCHLORIDE
     Indication: Anxiety
     Dosage: UNK, BID (TAKE 1 TABLET BY MOUTH 2 (TWO) TIMES DAILY AS NEEDED FOR OTHER (ANXIETY)) (60 TABLET)
     Route: 048
     Dates: start: 20250528
  4. ASPIRIN [Concomitant]
     Active Substance: ASPIRIN
     Indication: Product used for unknown indication
     Dosage: UNK UNK, QD
     Route: 048
  5. CARVEDILOL [Concomitant]
     Active Substance: CARVEDILOL
     Indication: Product used for unknown indication
     Dosage: UNK, BID (TAKE 1 TABLET BY MOUTH 2 (TWO) TIMES DAILY WITH MEALS) (180 TABLET)
     Route: 048
     Dates: start: 20250113
  6. CYANOCOBALAMIN [Concomitant]
     Active Substance: CYANOCOBALAMIN
     Indication: Product used for unknown indication
     Dosage: UNK, QD (TAKE 1 TABLET BY MOUTH DAILY. 1,000-400 MCG SL, LOZG)
     Route: 048
     Dates: start: 20221214
  7. DIGOXIN [Concomitant]
     Active Substance: DIGOXIN
     Indication: Product used for unknown indication
     Dosage: QD, 125 MCG (TAKE 1 TABLET BY MOUTH DAILY) (90 TABLET)
     Route: 048
     Dates: start: 20250324
  8. PROSCAR [Concomitant]
     Active Substance: FINASTERIDE
     Indication: Product used for unknown indication
     Dosage: UNK, QD (TAKE 1 TABLET BY MOUTH DAILY)
     Route: 048
  9. FUROSEMIDE [Concomitant]
     Active Substance: FUROSEMIDE
     Indication: Product used for unknown indication
     Dosage: UNK, QD (TAKE 1 TABLET BY MOUTH DAILY) (90 TABLET)
     Route: 048
     Dates: start: 20250306
  10. NEURONTIN [Concomitant]
     Active Substance: GABAPENTIN
     Indication: Product used for unknown indication
     Dosage: UNK, BID (TAKE 1 CAPSULE BY MOUTH 2 (TWO) TIMES DAILY)
     Route: 048
     Dates: start: 20190729
  11. LORATADINE [Concomitant]
     Active Substance: LORATADINE
     Indication: Product used for unknown indication
     Dosage: UNK, QD (TAKE 1 TABLET BY MOUTH DAILY)
     Route: 048
  12. PANTOPRAZOLE [Concomitant]
     Active Substance: PANTOPRAZOLE
     Indication: Product used for unknown indication
     Dosage: UNK, QD (TAKE 1 TABLET BY MOUTH DAILY)
     Route: 048
  13. PRAVACHOL [Concomitant]
     Active Substance: PRAVASTATIN SODIUM
     Indication: Product used for unknown indication
     Dosage: UNK, QD (TAKE 1 TABLET BY MOUTH AT BEDTIME) (90 TABLET)
     Route: 048
     Dates: start: 20180227
  14. VITAMINS [Concomitant]
     Active Substance: VITAMINS
     Indication: Product used for unknown indication
     Dosage: UNK, QD (27-0.4 MG (TABLET) TAKE 1 TABLET BY MOUTH DAILY)
     Route: 048
  15. DIETARY SUPPLEMENT [Concomitant]
     Active Substance: DIETARY SUPPLEMENT
     Indication: Product used for unknown indication
     Dosage: UNK, QD (TAKE 1 TABLET BY MOUTH DAILY)
     Route: 048

REACTIONS (8)
  - Device related infection [Fatal]
  - Vascular device infection [Unknown]
  - Venous hypertension [Unknown]
  - Chronic left ventricular failure [Unknown]
  - Ischaemic cardiomyopathy [Unknown]
  - Atrial fibrillation [Unknown]
  - Acute kidney injury [Unknown]
  - Arrhythmia [Unknown]
